FAERS Safety Report 7119601-5 (Version None)
Quarter: 2010Q4

REPORT INFORMATION
  Report Type: 
  Country: None (occurrence: None)
  Receive Date: 20101123
  Receipt Date: 20101104
  Transmission Date: 20110411
  Serious: Yes (Hospitalization)
  Sender: FDA-Public Use
  Company Number: FR-PURDUE-USA-2010-0054916

PATIENT
  Sex: Male

DRUGS (23)
  1. TRAMADOL HCL [Suspect]
     Indication: PRODUCT USED FOR UNKNOWN INDICATION
     Dosage: 100 UNK, UNK
     Route: 048
     Dates: start: 20101018, end: 20101020
  2. TRAMADOL HCL [Suspect]
     Dosage: 100 MG, UNK
     Route: 048
     Dates: start: 20100930, end: 20101015
  3. FENTANYL [Suspect]
     Indication: PRODUCT USED FOR UNKNOWN INDICATION
     Dosage: 25 MCG, Q1H
     Route: 062
     Dates: start: 20101014, end: 20101014
  4. FENTANYL [Suspect]
     Dosage: UNK
     Route: 065
     Dates: start: 20101005
  5. BUFLOMEDIL [Suspect]
     Indication: ILL-DEFINED DISORDER
     Dosage: 150 MG, UNK
     Route: 048
     Dates: start: 20100908
  6. ACETYLSALICYLIC ACID [Concomitant]
     Indication: ILL-DEFINED DISORDER
     Dosage: UNK
     Route: 065
     Dates: start: 20101017
  7. ACETYLSALICYLIC ACID [Concomitant]
     Dosage: UNK
     Route: 065
     Dates: end: 20101015
  8. ACEBUTOLOL HYDROCHLORIDE [Concomitant]
     Indication: ILL-DEFINED DISORDER
     Dosage: UNK
     Route: 065
     Dates: start: 20101018
  9. ACEBUTOLOL HYDROCHLORIDE [Concomitant]
     Dosage: UNK
     Route: 065
     Dates: end: 20101015
  10. TERBUTALINE SULFATE [Concomitant]
     Indication: ILL-DEFINED DISORDER
     Dosage: UNK
     Route: 065
     Dates: start: 20101017
  11. TERBUTALINE SULFATE [Concomitant]
     Dosage: UNK
     Route: 065
     Dates: end: 20101015
  12. OMEPRAZOLE [Concomitant]
     Indication: ILL-DEFINED DISORDER
     Dosage: UNK
     Route: 065
     Dates: start: 20101018, end: 20101019
  13. OMEPRAZOLE [Concomitant]
     Dosage: UNK
     Route: 065
     Dates: end: 20101015
  14. PRAZEPAM [Concomitant]
     Indication: ILL-DEFINED DISORDER
     Dosage: UNK
     Route: 065
     Dates: start: 20101018, end: 20101019
  15. PRAZEPAM [Concomitant]
     Dosage: UNK
     Route: 065
     Dates: end: 20101015
  16. AMLODIPINE BESYLATE [Concomitant]
     Indication: ILL-DEFINED DISORDER
     Dosage: UNK
     Route: 065
     Dates: end: 20101015
  17. ZOCOR [Concomitant]
     Indication: ILL-DEFINED DISORDER
     Dosage: UNK
     Route: 065
     Dates: end: 20101015
  18. DEROXAT [Concomitant]
     Indication: ILL-DEFINED DISORDER
     Dosage: UNK
     Route: 065
     Dates: end: 20101015
  19. ATROVENT [Concomitant]
     Indication: ILL-DEFINED DISORDER
     Dosage: UNK
     Route: 065
     Dates: end: 20101015
  20. ATROVENT [Concomitant]
     Dosage: UNK
     Route: 065
     Dates: start: 20101018
  21. PARACETAMOL [Concomitant]
     Indication: ILL-DEFINED DISORDER
     Dosage: UNK
     Route: 065
     Dates: start: 20101017, end: 20101017
  22. PARACETAMOL [Concomitant]
     Dosage: UNK
     Route: 065
     Dates: start: 20100910, end: 20101015
  23. BISACODYL [Concomitant]
     Indication: ILL-DEFINED DISORDER
     Dosage: UNK
     Route: 065
     Dates: start: 20101005

REACTIONS (1)
  - VASCULAR PURPURA [None]
